FAERS Safety Report 7463312-3 (Version None)
Quarter: 2011Q2

REPORT INFORMATION
  Report Type: 
  Country: None (occurrence: None)
  Receive Date: 20110506
  Receipt Date: 20110502
  Transmission Date: 20111010
  Serious: Yes (Disabling, Other)
  Sender: FDA-Public Use
  Company Number: CH-PFIZER INC-2011059684

PATIENT
  Age: 19 Year
  Sex: Male
  Weight: 80 kg

DRUGS (6)
  1. LYRICA [Suspect]
     Indication: PAIN
     Dosage: 300 MG, 1-3X/DAY
     Route: 048
     Dates: start: 20100908
  2. MEDROL [Concomitant]
     Dosage: 32 MG, UNK
     Route: 048
     Dates: start: 20100908
  3. TRAMADOL HCL [Suspect]
     Indication: SOMATOFORM DISORDER
     Dosage: 100 MG, 3 - 4X/DAY
     Route: 048
     Dates: start: 20101119
  4. SAROTEN [Concomitant]
     Dosage: 50 MG, 1-4X/DAY
     Route: 048
     Dates: start: 20100908
  5. TETRALYSAL [Concomitant]
     Dosage: 300 MG, UNK
     Dates: start: 20100908
  6. TRAMADOL HCL [Suspect]
     Indication: AXONAL NEUROPATHY

REACTIONS (4)
  - ACCIDENTAL OVERDOSE [None]
  - FATIGUE [None]
  - SLEEP APNOEA SYNDROME [None]
  - SOMNOLENCE [None]
